FAERS Safety Report 6299563-3 (Version None)
Quarter: 2009Q3

REPORT INFORMATION
  Report Type: 
  Country: None (occurrence: None)
  Receive Date: 20090806
  Receipt Date: 20090728
  Transmission Date: 20100115
  Serious: Yes (Hospitalization, Other)
  Sender: FDA-Public Use
  Company Number: SE-PFIZER INC-2009246345

PATIENT
  Age: 39 Year

DRUGS (3)
  1. LYRICA [Suspect]
     Dosage: 3, 15 G TOGETHER, UNK
     Route: 065
  2. ALPRAZOLAM [Suspect]
     Dosage: 10 MG, UNK
     Route: 065
  3. PROPIOMAZINE [Suspect]
     Dosage: 350 MG, UNK
     Route: 065

REACTIONS (3)
  - DEPRESSED LEVEL OF CONSCIOUSNESS [None]
  - OVERDOSE [None]
  - URINARY RETENTION [None]
